FAERS Safety Report 24228457 (Version 1)
Quarter: 2024Q3

REPORT INFORMATION
  Report Type: Spontaneous
  Country: CN (occurrence: CN)
  Receive Date: 20240820
  Receipt Date: 20240820
  Transmission Date: 20241016
  Serious: Yes (Hospitalization)
  Sender: PFIZER
  Company Number: CN-PFIZER INC-PV202400106755

PATIENT
  Age: 7 Year
  Sex: Female

DRUGS (1)
  1. ZITHROMAX [Suspect]
     Active Substance: AZITHROMYCIN DIHYDRATE
     Indication: Pneumonia mycoplasmal
     Dosage: 200 MG, ONCE A DAY
     Route: 048
     Dates: start: 20240809, end: 20240809

REACTIONS (9)
  - Vomiting [Recovering/Resolving]
  - Eating disorder [Unknown]
  - Urine output decreased [Unknown]
  - Dizziness [Unknown]
  - Rash pruritic [Recovering/Resolving]
  - Dehydration [Unknown]
  - Rash maculo-papular [Recovering/Resolving]
  - Skin ulcer [Unknown]
  - Discomfort [Unknown]

NARRATIVE: CASE EVENT DATE: 20240809
